FAERS Safety Report 9618975 (Version 3)
Quarter: 2013Q4

REPORT INFORMATION
  Report Type: Spontaneous
  Country: JP (occurrence: JP)
  Receive Date: 20131014
  Receipt Date: 20131101
  Transmission Date: 20140711
  Serious: Yes (Death, Life-Threatening, Hospitalization)
  Sender: FDA-Public Use
  Company Number: JP-PFIZER INC-2013293744

PATIENT
  Age: 76 Year
  Sex: Female

DRUGS (8)
  1. JZOLOFT [Suspect]
     Indication: DEPRESSION
     Dosage: 25 MG, 1X/DAY
     Route: 048
     Dates: start: 20070601
  2. CONSTAN [Concomitant]
     Dosage: 0.8 MG, 1X/DAY
     Route: 048
  3. MYSLEE [Concomitant]
     Dosage: 5 MG, 1X/DAY
     Route: 048
  4. VASOLAN [Concomitant]
     Dosage: 80 MG, UNK
     Route: 048
  5. GASMOTIN [Concomitant]
     Dosage: 5 MG, 1X/DAY
     Route: 048
  6. OHNES SZ [Concomitant]
     Dosage: UNK
     Route: 048
  7. MAGNESIUM OXIDE [Concomitant]
     Dosage: 1.5 MG, UNK
  8. GASOAL [Concomitant]
     Dosage: 80 MG, UNK

REACTIONS (5)
  - Death [Fatal]
  - Thirst [Recovered/Resolved]
  - Vomiting [Recovered/Resolved]
  - Abdominal pain [Recovered/Resolved]
  - Blood potassium decreased [Recovered/Resolved]
